FAERS Safety Report 6582777-2 (Version None)
Quarter: 2010Q1

REPORT INFORMATION
  Report Type: 
  Country: None (occurrence: None)
  Receive Date: 20100216
  Receipt Date: 20100205
  Transmission Date: 20100710
  Serious: Yes (Hospitalization, Other)
  Sender: FDA-Public Use
  Company Number: US-PFIZER INC-2009316102

PATIENT
  Sex: Male

DRUGS (3)
  1. GEMFIBROZIL [Suspect]
     Dosage: 600 MG, 2X/DAY
  2. LOPID [Suspect]
     Indication: BLOOD CHOLESTEROL INCREASED
     Dosage: 600 MG, 2X/DAY
  3. LOPID [Suspect]
     Indication: BLOOD TRIGLYCERIDES INCREASED

REACTIONS (5)
  - BLOOD CHOLESTEROL INCREASED [None]
  - BLOOD TRIGLYCERIDES INCREASED [None]
  - LUNG NEOPLASM MALIGNANT [None]
  - MENINGIOMA [None]
  - METASTASES TO LUNG [None]
